FAERS Safety Report 9491954 (Version 2)
Quarter: 2013Q3

REPORT INFORMATION
  Report Type: Spontaneous
  Country: US (occurrence: US)
  Receive Date: 20130830
  Receipt Date: 20130930
  Transmission Date: 20140515
  Serious: No
  Sender: FDA-Public Use
  Company Number: US-B.I. PHARMACEUTICALS,INC./RIDGEFIELD-2013-BI-26747BP

PATIENT
  Sex: Male

DRUGS (6)
  1. PRADAXA [Suspect]
     Indication: ATRIAL FIBRILLATION
     Dosage: 300 MG
     Route: 048
     Dates: start: 2010
  2. ASPIRIN [Concomitant]
     Dosage: 81 MG
     Route: 048
  3. AMIODARONE [Concomitant]
     Indication: CARDIAC ASSISTANCE DEVICE USER
     Dosage: 200 MG
     Route: 048
  4. ATENOLOL [Concomitant]
     Dosage: 50 MG
     Route: 048
  5. JALYN [Concomitant]
     Dosage: 0.5 MG
     Route: 048
  6. LIPITOR [Concomitant]
     Dosage: 10 MG
     Route: 048

REACTIONS (5)
  - Contusion [Recovered/Resolved]
  - Fall [Recovered/Resolved]
  - Fall [Recovered/Resolved]
  - Contusion [Unknown]
  - Contusion [Unknown]
